FAERS Safety Report 20146707 (Version 2)
Quarter: 2021Q4

REPORT INFORMATION
  Report Type: Report from Study
  Country: CA (occurrence: CA)
  Receive Date: 20211203
  Receipt Date: 20211210
  Transmission Date: 20220303
  Serious: Yes (Death, Other)
  Sender: FDA-Public Use
  Company Number: CA-NOVARTISPH-NVSC2021CA274990

PATIENT
  Age: 52 Year
  Sex: Male
  Weight: 45.7 kg

DRUGS (1)
  1. CERTICAN [Suspect]
     Active Substance: EVEROLIMUS
     Indication: Heart transplant
     Dosage: 3 MG(3MG/2.25 MG)
     Route: 048
     Dates: start: 20090824, end: 20211118

REACTIONS (2)
  - Pneumonia [Fatal]
  - Pulmonary fibrosis [Unknown]

NARRATIVE: CASE EVENT DATE: 20211119
